FAERS Safety Report 16451121 (Version 1)
Quarter: 2019Q3

REPORT INFORMATION
  Report Type: Spontaneous
  Country: US (occurrence: US)
  Receive Date: 20190618
  Receipt Date: 20190618
  Transmission Date: 20191004
  Serious: Yes (Hospitalization)
  Sender: FDA-Public Use
  Company Number: None

PATIENT
  Age: 41 Year
  Sex: Female
  Weight: 67.5 kg

DRUGS (5)
  1. MAGNESIUM [Concomitant]
     Active Substance: MAGNESIUM
  2. PARAGARD T 380A [Suspect]
     Active Substance: COPPER
     Indication: CONTRACEPTION
     Dosage: ?          QUANTITY:1 1;OTHER FREQUENCY:IMPLANT;?
     Route: 067
  3. MEDROXYPROGESTERONE [Concomitant]
     Active Substance: MEDROXYPROGESTERONE
  4. VITAMIN B12 [Concomitant]
     Active Substance: CYANOCOBALAMIN
  5. BCAA [Concomitant]

REACTIONS (5)
  - Fluid retention [None]
  - Complication associated with device [None]
  - Gait disturbance [None]
  - Menorrhagia [None]
  - Pain [None]

NARRATIVE: CASE EVENT DATE: 20190522
